FAERS Safety Report 5449984-3 (Version None)
Quarter: 2007Q3

REPORT INFORMATION
  Report Type: 
  Country: None (occurrence: None)
  Receive Date: 20070912
  Receipt Date: 20070911
  Transmission Date: 20080115
  Serious: No
  Sender: FDA-Public Use
  Company Number: JP-SP-2007-02875

PATIENT
  Age: 68 Year
  Sex: Male

DRUGS (3)
  1. IMMUCYST [Suspect]
     Indication: BLADDER CANCER
     Route: 043
     Dates: start: 20061108, end: 20061204
  2. IMMUCYST [Suspect]
     Route: 043
     Dates: start: 20061108, end: 20061204
  3. LEVOFLOXACIN [Concomitant]
     Dates: start: 20061023, end: 20061217

REACTIONS (2)
  - ABDOMINAL PAIN LOWER [None]
  - POLLAKIURIA [None]
